FAERS Safety Report 18573938 (Version 3)
Quarter: 2021Q1

REPORT INFORMATION
  Report Type: Other
  Country: TR (occurrence: TR)
  Receive Date: 20201203
  Receipt Date: 20210225
  Transmission Date: 20210419
  Serious: Yes (Life-Threatening, Hospitalization)
  Sender: FDA-Public Use
  Company Number: TR-ROCHE-2725026

PATIENT
  Age: 39 Year
  Sex: Male

DRUGS (6)
  1. PREDNOL?L [Concomitant]
     Dosage: SUBSEQUENT DOSE: 21/FEB/2019, 25/JUL/2019, 10/FEB/2020, 05/AUG/2020
     Route: 042
     Dates: start: 20190207, end: 20190207
  2. OCRELIZUMAB. [Suspect]
     Active Substance: OCRELIZUMAB
     Dosage: DOSING FORMULATION: 600 MG/500 ML?DATE OF MOST RECENT DOSE OF OCRELIZUMAB PRIOR TO AE AND SAE ONSET:
     Route: 042
     Dates: start: 20200805, end: 20200805
  3. OCRELIZUMAB. [Suspect]
     Active Substance: OCRELIZUMAB
     Indication: MULTIPLE SCLEROSIS
     Dosage: DOSING FORMULATION: 300 MG/250 ML
     Route: 042
     Dates: start: 20190207, end: 20190207
  4. OCRELIZUMAB. [Suspect]
     Active Substance: OCRELIZUMAB
     Dosage: DOSING FORMULATION: 600 MG/500 ML
     Route: 042
     Dates: start: 20200210, end: 20200210
  5. OCRELIZUMAB. [Suspect]
     Active Substance: OCRELIZUMAB
     Dosage: DOSING FORMULATION: 600 MG/500 ML
     Route: 042
     Dates: start: 20190725, end: 20190725
  6. OCRELIZUMAB. [Suspect]
     Active Substance: OCRELIZUMAB
     Dosage: DOSING FORMULATION: 300 MG/250 ML
     Route: 042
     Dates: start: 20190221, end: 20190221

REACTIONS (1)
  - COVID-19 [Recovered/Resolved]

NARRATIVE: CASE EVENT DATE: 20201106
